FAERS Safety Report 14288539 (Version 3)
Quarter: 2017Q4

REPORT INFORMATION
  Report Type: Report from Study
  Country: US (occurrence: US)
  Receive Date: 20171215
  Receipt Date: 20171221
  Transmission Date: 20180321
  Serious: No
  Sender: FDA-Public Use
  Company Number: US-AMGEN-USASL2017184823

PATIENT
  Age: 41 Year
  Sex: Female

DRUGS (1)
  1. ENBREL [Suspect]
     Active Substance: ETANERCEPT
     Indication: RHEUMATOID ARTHRITIS
     Dosage: 50 MG, QWK
     Route: 058
     Dates: start: 201711

REACTIONS (4)
  - Injection site pruritus [Not Recovered/Not Resolved]
  - Injection site infection [Unknown]
  - Injection site swelling [Not Recovered/Not Resolved]
  - Injection site warmth [Unknown]

NARRATIVE: CASE EVENT DATE: 201712
